FAERS Safety Report 12104371 (Version 2)
Quarter: 2017Q4

REPORT INFORMATION
  Report Type: Report from Study
  Country: BR (occurrence: BR)
  Receive Date: 20160223
  Receipt Date: 20171003
  Transmission Date: 20180320
  Serious: Yes (Hospitalization, Other)
  Sender: FDA-Public Use
  Company Number: BR-IPSEN BIOPHARMACEUTICALS, INC.-2016-00038

PATIENT
  Age: 69 Year
  Sex: Male
  Weight: 79 kg

DRUGS (8)
  1. DYSPORT [Suspect]
     Active Substance: ABOBOTULINUMTOXINA
     Dosage: NOT REPORTED
     Route: 065
     Dates: start: 201601, end: 201601
  2. DIPYRONE [Concomitant]
     Active Substance: DIPYRONE
  3. FERROUS SULFATE. [Concomitant]
     Active Substance: FERROUS SULFATE
  4. DYSPORT [Suspect]
     Active Substance: ABOBOTULINUMTOXINA
     Indication: MUSCLE SPASTICITY
     Dosage: 500 UNITS
     Route: 065
     Dates: start: 20150825, end: 20150825
  5. SIMVASTATIN. [Concomitant]
     Active Substance: SIMVASTATIN
  6. MIOSAN [Concomitant]
     Active Substance: CYCLOBENZAPRINE
  7. ACETYLSALICYLIC ACID [Concomitant]
     Active Substance: ASPIRIN
  8. INSULIN [Concomitant]
     Active Substance: INSULIN NOS

REACTIONS (5)
  - Myocardial infarction [Recovered/Resolved with Sequelae]
  - Cerebrovascular accident [Recovered/Resolved with Sequelae]
  - Cerebrovascular accident [Recovered/Resolved with Sequelae]
  - Paraparesis [Unknown]
  - Urinary bladder haemorrhage [Unknown]

NARRATIVE: CASE EVENT DATE: 20151212
